FAERS Safety Report 5326364-2 (Version None)
Quarter: 2007Q2

REPORT INFORMATION
  Report Type: 
  Country: None (occurrence: None)
  Receive Date: 20070516
  Receipt Date: 20070510
  Transmission Date: 20071010
  Serious: Yes (Hospitalization)
  Sender: FDA-Public Use
  Company Number: B0470353A

PATIENT
  Age: 71 Year
  Sex: Male

DRUGS (5)
  1. AVANDIA [Suspect]
     Dosage: 8MG PER DAY
     Route: 048
     Dates: start: 20041001, end: 20070222
  2. METFORMIN [Concomitant]
     Dosage: 850MG THREE TIMES PER DAY
  3. SIMVASTATIN [Concomitant]
  4. PERINDOPRIL [Concomitant]
  5. INSULIN [Concomitant]

REACTIONS (3)
  - CARDIAC FAILURE [None]
  - DYSPNOEA [None]
  - WEIGHT INCREASED [None]
